FAERS Safety Report 21394998 (Version 4)
Quarter: 2023Q2

REPORT INFORMATION
  Report Type: Report from Study
  Country: ES (occurrence: ES)
  Receive Date: 20220930
  Receipt Date: 20230612
  Transmission Date: 20230722
  Serious: Yes (Hospitalization)
  Sender: FDA-Public Use
  Company Number: ES-NOVARTISPH-NVSC2022ES140505

PATIENT
  Age: 49 Year
  Sex: Female

DRUGS (8)
  1. PIQRAY [Suspect]
     Active Substance: ALPELISIB
     Indication: Breast cancer
     Dosage: 300 MG
     Route: 048
     Dates: start: 20220325, end: 20220605
  2. PIQRAY [Suspect]
     Active Substance: ALPELISIB
     Dosage: 250 MG
     Route: 048
     Dates: start: 20220723
  3. TRASTUZUMAB [Suspect]
     Active Substance: TRASTUZUMAB
     Indication: Breast cancer
     Dosage: 600 MG
     Route: 058
     Dates: start: 20220325
  4. MORPHINE SULFATE [Concomitant]
     Active Substance: MORPHINE SULFATE
     Indication: Pain
     Dosage: UNK
     Route: 065
     Dates: start: 202202
  5. FENTANYL [Concomitant]
     Active Substance: FENTANYL
     Indication: Pain
     Dosage: UNK
     Route: 065
     Dates: start: 20220401
  6. OMEPRAZOLE [Concomitant]
     Active Substance: OMEPRAZOLE
     Indication: Prophylaxis
     Dosage: UNK
     Route: 065
     Dates: start: 20220315
  7. MORPHINE [Concomitant]
     Active Substance: MORPHINE
     Indication: Pain
     Dosage: UNK
     Route: 065
     Dates: start: 202202
  8. CLORAZEPATE DIPOTASSIUM [Concomitant]
     Active Substance: CLORAZEPATE DIPOTASSIUM
     Indication: Insomnia
     Dosage: UNK
     Route: 065
     Dates: start: 201903

REACTIONS (1)
  - Mesenteric panniculitis [Recovered/Resolved]

NARRATIVE: CASE EVENT DATE: 20220608
